FAERS Safety Report 4625510-3 (Version None)
Quarter: 2005Q2

REPORT INFORMATION
  Report Type: 
  Country: None (occurrence: None)
  Receive Date: 20050401
  Receipt Date: 20050328
  Transmission Date: 20051028
  Serious: Yes (Hospitalization)
  Sender: FDA-Public Use
  Company Number: DE-ABBOTT-05P-062-0295720-00

PATIENT
  Sex: Female
  Weight: 90 kg

DRUGS (4)
  1. ISOPTIN [Suspect]
     Indication: SUICIDE ATTEMPT
     Route: 048
     Dates: start: 20050328, end: 20050328
  2. AFONILUM RETARD MITE [Suspect]
     Indication: SUICIDE ATTEMPT
     Route: 048
     Dates: start: 20050328, end: 20050328
  3. RAMIPRIL [Suspect]
     Indication: SUICIDE ATTEMPT
     Route: 048
     Dates: start: 20050328, end: 20050328
  4. HYDROCHLOROTHIAZIDE [Suspect]
     Indication: SUICIDE ATTEMPT
     Route: 048
     Dates: start: 20050328, end: 20050328

REACTIONS (2)
  - OVERDOSE [None]
  - SUICIDE ATTEMPT [None]
